FAERS Safety Report 5155467-0 (Version None)
Quarter: 2006Q4

REPORT INFORMATION
  Report Type: 
  Country: None (occurrence: None)
  Receive Date: 20061121
  Receipt Date: 20061114
  Transmission Date: 20070319
  Serious: Yes (Death)
  Sender: FDA-Public Use
  Company Number: DE-ROXANE LABORATORIES, INC-2006-DE-06047GD

PATIENT
  Age: 26 Year
  Sex: Female
  Weight: 51 kg

DRUGS (10)
  1. MORPHINE [Suspect]
     Indication: PROCEDURAL PAIN
     Route: 042
  2. FENTANYL [Suspect]
  3. FLUNITRAZEPAM [Suspect]
     Indication: ANAESTHETIC PREMEDICATION
  4. THIOPENTAL SODIUM [Suspect]
     Indication: ANAESTHESIA
  5. NITROUS OXIDE W/ OXYGEN [Suspect]
     Indication: ANAESTHESIA
     Route: 055
  6. SEVOFLURANE [Suspect]
     Indication: ANAESTHESIA
     Route: 055
  7. ATROPINE [Concomitant]
     Indication: ANAESTHESIA
  8. SUXAMETHONIUM CHLORIDE [Concomitant]
     Indication: ANAESTHESIA
  9. PANCURONIUM BROMIDE [Concomitant]
     Indication: ANAESTHESIA
  10. OXYGEN [Concomitant]
     Indication: ANAESTHESIA
     Route: 055

REACTIONS (9)
  - BRAIN DEATH [None]
  - CARDIAC ARREST [None]
  - DRUG INEFFECTIVE [None]
  - INCORRECT DOSE ADMINISTERED [None]
  - LOSS OF CONSCIOUSNESS [None]
  - POISONING [None]
  - POST PROCEDURAL COMPLICATION [None]
  - PROCEDURAL PAIN [None]
  - RESPIRATORY DEPRESSION [None]
